FAERS Safety Report 16145438 (Version 2)
Quarter: 2019Q2

REPORT INFORMATION
  Report Type: Spontaneous
  Country: US (occurrence: US)
  Receive Date: 20190402
  Receipt Date: 20190509
  Transmission Date: 20190711
  Serious: Yes (Other)
  Sender: FDA-Public Use
  Company Number: US-BEH-2019101032

PATIENT
  Sex: Female

DRUGS (2)
  1. HIZENTRA [Suspect]
     Active Substance: HUMAN IMMUNOGLOBULIN G
     Indication: HYPOGAMMAGLOBULINAEMIA
     Dosage: 30 G, QOW
     Route: 058
     Dates: start: 20190201, end: 2019
  2. HIZENTRA [Suspect]
     Active Substance: HUMAN IMMUNOGLOBULIN G
     Indication: IMMUNODEFICIENCY
     Dosage: 2 G, QOW
     Route: 058
     Dates: start: 20190201, end: 2019

REACTIONS (5)
  - Drug ineffective [Unknown]
  - Anxiety [Unknown]
  - Viral infection [Unknown]
  - Feeling abnormal [Recovered/Resolved]
  - Bacterial infection [Unknown]
